FAERS Safety Report 5066932-9 (Version None)
Quarter: 2006Q3

REPORT INFORMATION
  Report Type: 
  Country: None (occurrence: None)
  Receive Date: 20060728
  Receipt Date: 20060718
  Transmission Date: 20061208
  Serious: Yes (Life-Threatening, Hospitalization)
  Sender: FDA-Public Use
  Company Number: S06-USA-02793-01

PATIENT

DRUGS (1)
  1. INFASURF PRESERVATIVE FREE [Suspect]
     Indication: PROPHYLAXIS

REACTIONS (3)
  - CARDIO-RESPIRATORY ARREST [None]
  - HYPOTENSION [None]
  - HYPOXIA [None]
